FAERS Safety Report 7524379-7 (Version None)
Quarter: 2011Q2

REPORT INFORMATION
  Report Type: 
  Country: None (occurrence: None)
  Receive Date: 20110606
  Receipt Date: 20090916
  Transmission Date: 20111010
  Serious: No
  Sender: FDA-Public Use
  Company Number: 2009BI030326

PATIENT
  Age: 41 Year
  Sex: Male

DRUGS (3)
  1. BACLOFEN [Concomitant]
     Indication: MUSCLE SPASTICITY
     Dates: start: 20080101
  2. TYSABRI [Suspect]
     Indication: MULTIPLE SCLEROSIS
     Route: 042
     Dates: start: 20090827
  3. BACLOFEN [Concomitant]
     Indication: MUSCULOSKELETAL STIFFNESS
     Dates: start: 20080101

REACTIONS (7)
  - BALANCE DISORDER [None]
  - RASH [None]
  - MUSCULAR WEAKNESS [None]
  - ASTHENIA [None]
  - DRUG EFFECT DECREASED [None]
  - PRURITUS GENERALISED [None]
  - GAIT DISTURBANCE [None]
